FAERS Safety Report 8383401-9 (Version None)
Quarter: 2012Q2

REPORT INFORMATION
  Report Type: 
  Country: None (occurrence: None)
  Receive Date: 20120524
  Receipt Date: 20120514
  Transmission Date: 20120825
  Serious: No
  Sender: FDA-Public Use
  Company Number: US-PFIZER INC-2012101240

PATIENT
  Sex: Female

DRUGS (2)
  1. FLUCONAZOLE [Suspect]
     Indication: FUNGAL INFECTION
  2. FLUCONAZOLE [Suspect]
     Indication: INFECTIOUS PERITONITIS
     Dosage: UNK
     Route: 042

REACTIONS (1)
  - NO ADVERSE EVENT [None]
